FAERS Safety Report 15711768 (Version 2)
Quarter: 2019Q1

REPORT INFORMATION
  Report Type: Report from Study
  Country: None (occurrence: US)
  Receive Date: 20181212
  Receipt Date: 20190113
  Transmission Date: 20190417
  Serious: Yes (Other)
  Sender: FDA-Public Use
  Company Number: US-ABBVIE-18K-163-2583141-00

PATIENT
  Age: 61 Year
  Sex: Female
  Weight: 79 kg

DRUGS (1)
  1. HUMIRA [Suspect]
     Active Substance: ADALIMUMAB
     Indication: RHEUMATOID ARTHRITIS
     Route: 058

REACTIONS (11)
  - Vaginal haemorrhage [Recovered/Resolved]
  - Neuralgia [Recovering/Resolving]
  - Cardiac disorder [Recovering/Resolving]
  - Vulvovaginal injury [Recovered/Resolved]
  - Headache [Not Recovered/Not Resolved]
  - Ocular hyperaemia [Recovering/Resolving]
  - Influenza like illness [Recovering/Resolving]
  - Migraine [Recovering/Resolving]
  - Nerve injury [Unknown]
  - Nasopharyngitis [Recovering/Resolving]
  - Contusion [Recovering/Resolving]

NARRATIVE: CASE EVENT DATE: 2018
